FAERS Safety Report 16925736 (Version 2)
Quarter: 2019Q4

REPORT INFORMATION
  Report Type: Spontaneous
  Country: CA (occurrence: CA)
  Receive Date: 20191016
  Receipt Date: 20191031
  Transmission Date: 20200122
  Serious: Yes (Death, Other)
  Sender: FDA-Public Use
  Company Number: NVSC2019CA004548

PATIENT
  Age: 58 Year
  Sex: Female

DRUGS (8)
  1. BISOPROLOL [Concomitant]
     Active Substance: BISOPROLOL
     Indication: PRODUCT USED FOR UNKNOWN INDICATION
     Route: 065
  2. TROPICAMIDE. [Concomitant]
     Active Substance: TROPICAMIDE
     Indication: PREOPERATIVE CARE
     Dosage: 1 GTT
     Route: 065
     Dates: start: 20190912
  3. SIMVASTATIN. [Concomitant]
     Active Substance: SIMVASTATIN
     Indication: PRODUCT USED FOR UNKNOWN INDICATION
     Route: 065
  4. TRAMADOL. [Concomitant]
     Active Substance: TRAMADOL
     Indication: PRODUCT USED FOR UNKNOWN INDICATION
     Route: 065
  5. DICLOFENAC [Concomitant]
     Active Substance: DICLOFENAC
     Indication: PRODUCT USED FOR UNKNOWN INDICATION
     Route: 065
  6. MAXIDEX [Suspect]
     Active Substance: DEXAMETHASONE
     Indication: PREOPERATIVE CARE
     Dosage: 1 GTT, QID  (FOR A TOTAL DURATION OF 4 WEEKS FROM SURGERY DATE)
     Route: 047
     Dates: start: 20190912
  7. BESIVANCE [Concomitant]
     Active Substance: BESIFLOXACIN
     Indication: PRODUCT USED FOR UNKNOWN INDICATION
     Dosage: 1 GTT, TID (CONTINUED DAILY UNTILL 1 WEEK AFTER SURGERY)
     Route: 065
     Dates: start: 20190910
  8. PROLENSA [Concomitant]
     Active Substance: BROMFENAC SODIUM
     Indication: PRODUCT USED FOR UNKNOWN INDICATION
     Dosage: 1 GTT, QD (CONTINUED UNTILL 1 BOTTLE FINISED) (3-4 WEEKS)
     Route: 065
     Dates: start: 20190910

REACTIONS (3)
  - Intraocular pressure increased [Recovered/Resolved]
  - Duodenal ulcer perforation [Fatal]
  - Peritonitis [Fatal]

NARRATIVE: CASE EVENT DATE: 20190912
